FAERS Safety Report 15845001 (Version 3)
Quarter: 2019Q2

REPORT INFORMATION
  Report Type: Spontaneous
  Country: IT (occurrence: IT)
  Receive Date: 20190119
  Receipt Date: 20190419
  Transmission Date: 20190711
  Serious: Yes (Other)
  Sender: FDA-Public Use
  Company Number: IT-AUROBINDO-AUR-APL-2019-001520

PATIENT

DRUGS (4)
  1. LORAZEPAM TABLETS [Suspect]
     Active Substance: LORAZEPAM
     Indication: DRUG ABUSE
  2. PROZIN (CHLORPROMAZINE HYDROCHLORIDE) [Suspect]
     Active Substance: CHLORPROMAZINE HYDROCHLORIDE
     Indication: DEPRESSION
     Dosage: 120 MILLIGRAM
     Route: 048
     Dates: start: 20181107, end: 20181107
  3. PROZIN (CHLORPROMAZINE HYDROCHLORIDE) [Suspect]
     Active Substance: CHLORPROMAZINE HYDROCHLORIDE
     Indication: DRUG ABUSE
  4. LORAZEPAM TABLETS [Suspect]
     Active Substance: LORAZEPAM
     Indication: DEPRESSION
     Dosage: 17.5 MILLIGRAM, TOTAL
     Route: 048
     Dates: start: 20181107, end: 20181107

REACTIONS (4)
  - Poisoning [Unknown]
  - Drug abuse [Unknown]
  - Sopor [Unknown]
  - Toxicity to various agents [Unknown]

NARRATIVE: CASE EVENT DATE: 20181107
